FAERS Safety Report 6757134-6 (Version None)
Quarter: 2010Q2

REPORT INFORMATION
  Report Type: 
  Country: None (occurrence: None)
  Receive Date: 20100605
  Receipt Date: 20100528
  Transmission Date: 20101027
  Serious: Yes (Death, Hospitalization, Other)
  Sender: FDA-Public Use
  Company Number: US-ROCHE-696121

PATIENT
  Sex: Female
  Weight: 54.4 kg

DRUGS (1)
  1. CAPECITABINE [Suspect]
     Dosage: THREE TABLETS TWICE DAILY.
     Route: 048
     Dates: start: 20091209, end: 20100401

REACTIONS (5)
  - ASCITES [None]
  - DEATH [None]
  - MALIGNANT NEOPLASM PROGRESSION [None]
  - MOBILITY DECREASED [None]
  - OEDEMA PERIPHERAL [None]
